FAERS Safety Report 10023868 (Version 1)
Quarter: 2014Q1

REPORT INFORMATION
  Report Type: Report from Study
  Country: CA (occurrence: CA)
  Receive Date: 20140320
  Receipt Date: 20140320
  Transmission Date: 20141002
  Serious: Yes (Hospitalization, Other)
  Sender: FDA-Public Use
  Company Number: CA-JNJFOC-20140307116

PATIENT
  Sex: Male

DRUGS (2)
  1. REMICADE [Suspect]
     Indication: CROHN^S DISEASE
     Dosage: STRENGTH 100 MGX4
     Route: 042
     Dates: start: 20140117
  2. REMICADE [Suspect]
     Indication: CROHN^S DISEASE
     Dosage: STRENGTH 100 MGX4
     Route: 042

REACTIONS (2)
  - Cholangitis sclerosing [Unknown]
  - Investigation [Unknown]
